FAERS Safety Report 6190178-4 (Version None)
Quarter: 2009Q2

REPORT INFORMATION
  Report Type: 
  Country: None (occurrence: None)
  Receive Date: 20090514
  Receipt Date: 20090507
  Transmission Date: 20091009
  Serious: Yes (Hospitalization)
  Sender: FDA-Public Use
  Company Number: CA-ELI_LILLY_AND_COMPANY-CA200905000102

PATIENT
  Age: 84 Year
  Sex: Female

DRUGS (3)
  1. FORTEO [Suspect]
     Indication: OSTEOPOROSIS
     Dosage: 20 UG, DAILY (1/D)
     Route: 058
     Dates: start: 20090405
  2. CALCITONIN [Concomitant]
  3. CALCIUM                                 /N/A/ [Concomitant]

REACTIONS (2)
  - CONFUSIONAL STATE [None]
  - MEMORY IMPAIRMENT [None]
